FAERS Safety Report 5761228-1 (Version None)
Quarter: 2008Q2

REPORT INFORMATION
  Report Type: 
  Country: None (occurrence: None)
  Receive Date: 20080606
  Receipt Date: 20080530
  Transmission Date: 20081010
  Serious: Yes (Other)
  Sender: FDA-Public Use
  Company Number: PHEH2008US04984

PATIENT
  Sex: Female

DRUGS (4)
  1. DIOVAN [Suspect]
     Indication: HYPERTENSION
     Dosage: 160 MG, QD
  2. DEMADEX [Suspect]
     Dosage: 10 MG, QD
  3. PROCARDIA XL [Suspect]
     Dosage: 90 MG, QD
  4. VITAMIN TAB [Suspect]
     Dosage: UNK

REACTIONS (1)
  - HENOCH-SCHONLEIN PURPURA [None]
